FAERS Safety Report 23440469 (Version 1)
Quarter: 2024Q1

REPORT INFORMATION
  Report Type: Spontaneous
  Country: US (occurrence: US)
  Receive Date: 20240125
  Receipt Date: 20240125
  Transmission Date: 20240410
  Serious: Yes (Death)
  Sender: FDA-Public Use
  Company Number: US-JNJFOC-20240157981

PATIENT
  Sex: Female

DRUGS (5)
  1. TRACLEER [Suspect]
     Active Substance: BOSENTAN
     Indication: Pulmonary arterial hypertension
     Dosage: BOSENTAN LIQUID FORM(10MG ORAL LIQUID)
     Route: 048
  2. TRACLEER [Suspect]
     Active Substance: BOSENTAN
     Route: 048
  3. ILOPROST [Suspect]
     Active Substance: ILOPROST
     Indication: Pulmonary arterial hypertension
     Route: 055
  4. SILDENAFIL [Concomitant]
     Active Substance: SILDENAFIL
     Indication: Product used for unknown indication
     Dosage: EVERY 6 HOURS
     Route: 042
  5. TREPROSTINIL [Concomitant]
     Active Substance: TREPROSTINIL
     Indication: Product used for unknown indication
     Dosage: INCREASING TO 33NG/KG/MIN

REACTIONS (3)
  - Death [Fatal]
  - Drug ineffective [Unknown]
  - Off label use [Unknown]
